FAERS Safety Report 9257653 (Version 1)
Quarter: 2013Q2

REPORT INFORMATION
  Report Type: Spontaneous
  Country: US (occurrence: None)
  Receive Date: 20130424
  Receipt Date: 20130424
  Transmission Date: 20140414
  Serious: No
  Sender: FDA-Public Use
  Company Number: None

PATIENT
  Age: 40 Year
  Sex: Male
  Weight: 52.16 kg

DRUGS (1)
  1. ZYREXIN [Suspect]
     Indication: MALE SEXUAL DYSFUNCTION
     Dosage: ONCE USE, 1-2 TABLETS, 1 HR PRIOR TO SEX, PO
     Route: 048

REACTIONS (5)
  - Urticaria [None]
  - Nausea [None]
  - Vomiting [None]
  - Migraine [None]
  - Disorientation [None]
